FAERS Safety Report 11694834 (Version 2)
Quarter: 2015Q4

REPORT INFORMATION
  Report Type: Spontaneous
  Country: CA (occurrence: CA)
  Receive Date: 20151103
  Receipt Date: 20151118
  Transmission Date: 20160304
  Serious: Yes (Other)
  Sender: FDA-Public Use
  Company Number: CA-IMPAX LABORATORIES, INC-2015-IPXL-01084

PATIENT
  Age: 14 Year
  Sex: Female

DRUGS (3)
  1. PENICILLIN                         /00000901/ [Concomitant]
     Active Substance: PENICILLIN G
     Indication: PHARYNGITIS STREPTOCOCCAL
     Route: 065
  2. TETRACYCLINE HYDROCHLORIDE. [Suspect]
     Active Substance: TETRACYCLINE HYDROCHLORIDE
     Indication: ACNE
     Dosage: 500 MG, DAILY
     Route: 048
  3. ESCITALOPRAM [Concomitant]
     Active Substance: ESCITALOPRAM OXALATE
     Indication: DEPRESSION
     Route: 065

REACTIONS (1)
  - Intracranial pressure increased [Recovering/Resolving]
